FAERS Safety Report 6525006-8 (Version None)
Quarter: 2010Q1

REPORT INFORMATION
  Report Type: 
  Country: None (occurrence: None)
  Receive Date: 20100104
  Receipt Date: 20091222
  Transmission Date: 20100710
  Serious: Yes (Other)
  Sender: FDA-Public Use
  Company Number: CA-SANOFI-AVENTIS-2009SA010801

PATIENT
  Age: 66 Year
  Sex: Male

DRUGS (14)
  1. CLOPIDOGREL BISULFATE [Suspect]
     Route: 048
     Dates: start: 20020101
  2. BIAXIN [Concomitant]
     Indication: PNEUMONIA
     Route: 048
     Dates: start: 20091217
  3. ASPIRIN [Concomitant]
     Indication: DRUG USE FOR UNKNOWN INDICATION
     Route: 048
     Dates: start: 20020101, end: 20091217
  4. LIPITOR [Concomitant]
     Indication: DRUG USE FOR UNKNOWN INDICATION
     Route: 048
     Dates: start: 20020101, end: 20091217
  5. MICARDIS [Concomitant]
     Indication: DRUG USE FOR UNKNOWN INDICATION
     Dosage: 1 TABLET (80 MG/12.5 MG) TWICE DAILY
     Route: 048
     Dates: start: 20020101
  6. ZOPICLONE [Concomitant]
     Indication: SLEEP DISORDER
     Route: 048
     Dates: start: 20020101
  7. AMITRIPTYLINE [Concomitant]
     Dosage: 10 MG AT BEDTIME
     Route: 048
     Dates: start: 20090101
  8. VITAMIN B6, B12, FOLIC ACID [Concomitant]
     Indication: DRUG USE FOR UNKNOWN INDICATION
     Route: 048
     Dates: start: 20020101
  9. TYLENOL W/ CODEINE [Concomitant]
     Indication: PAIN
     Route: 048
     Dates: start: 20020101
  10. MULTI-VITAMINS [Concomitant]
     Indication: DRUG USE FOR UNKNOWN INDICATION
     Route: 048
     Dates: start: 20020101
  11. METOPROLOL TARTRATE [Concomitant]
     Indication: DRUG USE FOR UNKNOWN INDICATION
     Route: 048
     Dates: start: 20020101
  12. PMS-GABAPENTIN [Concomitant]
     Indication: DRUG USE FOR UNKNOWN INDICATION
     Route: 048
     Dates: start: 20020101
  13. VITAMIN C [Concomitant]
     Indication: DRUG USE FOR UNKNOWN INDICATION
     Route: 048
     Dates: start: 20020101
  14. NOVO-METFORMIN [Concomitant]
     Route: 048
     Dates: start: 20020101

REACTIONS (4)
  - COLD SWEAT [None]
  - HEADACHE [None]
  - VASCULAR OCCLUSION [None]
  - VISION BLURRED [None]
